FAERS Safety Report 10038698 (Version 1)
Quarter: 2014Q1

REPORT INFORMATION
  Report Type: Spontaneous
  Country: US (occurrence: US)
  Receive Date: 20140326
  Receipt Date: 20140326
  Transmission Date: 20141002
  Serious: No
  Sender: FDA-Public Use
  Company Number: US-BAYER-2014-040918

PATIENT
  Sex: Male

DRUGS (3)
  1. ALEVE TABLET [Suspect]
     Dosage: 1 DF, QD
     Route: 048
     Dates: start: 201309
  2. LISINOPRIL [Concomitant]
  3. VITAMIN D [Concomitant]

REACTIONS (1)
  - Incorrect drug administration duration [None]
